FAERS Safety Report 8447360-2 (Version None)
Quarter: 2012Q2

REPORT INFORMATION
  Report Type: 
  Country: None (occurrence: None)
  Receive Date: 20120612
  Receipt Date: 20120528
  Transmission Date: 20120825
  Serious: Yes (Hospitalization)
  Sender: FDA-Public Use
  Company Number: TPA2012A03402

PATIENT
  Age: 78 Year
  Sex: Male

DRUGS (11)
  1. ALTAT (ROXATIDINE ACETATE HYDROCHLORIDE) [Concomitant]
  2. MUCOSOLVAN TABLET (AMBROXOL) [Concomitant]
  3. THEO-DUR [Concomitant]
  4. ADALAT [Concomitant]
  5. DIGOSIN (DIGOSIN) [Concomitant]
  6. WARFARIN SODIUM [Concomitant]
  7. HOKUNALIN:TAPE (TULOBUTEROL HYDROCHLORIDE) [Concomitant]
  8. ISOSORBIDE DINITRATE [Concomitant]
  9. FEBURIC (FEBUXOSTAT) [Suspect]
     Indication: HYPERURICAEMIA
     Dosage: 10 MG (10 MG, 1 IN 1 D)
     Route: 048
     Dates: start: 20110901, end: 20120514
  10. ECARD (LISINOPRIL) [Concomitant]
  11. LASIX [Concomitant]

REACTIONS (2)
  - PLEURAL EFFUSION [None]
  - PLEURISY [None]
